FAERS Safety Report 9104009 (Version 4)
Quarter: 2013Q2

REPORT INFORMATION
  Report Type: Spontaneous
  Country: US (occurrence: US)
  Receive Date: 20130219
  Receipt Date: 20130521
  Transmission Date: 20140414
  Serious: No
  Sender: FDA-Public Use
  Company Number: US-PFIZER INC-2013060099

PATIENT
  Age: 60 Year
  Sex: Female
  Weight: 60.77 kg

DRUGS (8)
  1. SUTENT [Suspect]
     Indication: METASTATIC RENAL CELL CARCINOMA
     Dosage: 50 MG, 1X/DAY
     Dates: start: 20130120
  2. SUTENT [Suspect]
     Dosage: 25 MG FOR 21 DAYS ON AND THEN 21 DAYS OFF
  3. AVAPRO [Concomitant]
     Indication: HYPERTENSION
     Dosage: 150 MG, DAILY
  4. METOPROLOL [Concomitant]
     Indication: HEART RATE ABNORMAL
     Dosage: 25 MG, TWICE A DAY
     Route: 048
  5. NORCO [Concomitant]
     Indication: PAIN
     Dosage: 10 UNK, AS NEEDED
  6. PRILOSEC [Concomitant]
     Dosage: 20 MG, DAILY
  7. SOMA [Concomitant]
     Dosage: UNK
  8. Z-PAK [Concomitant]
     Dosage: UNK

REACTIONS (7)
  - Tenderness [Recovered/Resolved]
  - Skin burning sensation [Recovered/Resolved]
  - Local swelling [Unknown]
  - Pain in extremity [Unknown]
  - Blister [Unknown]
  - Rash erythematous [Unknown]
  - Fatigue [Unknown]
